FAERS Safety Report 8570739-5 (Version None)
Quarter: 2012Q3

REPORT INFORMATION
  Report Type: 
  Country: None (occurrence: None)
  Receive Date: 20120805
  Receipt Date: 20120324
  Transmission Date: 20120928
  Serious: Yes (Death)
  Sender: FDA-Public Use
  Company Number: PHHY2012CO066728

PATIENT

DRUGS (1)
  1. AFINITOR [Suspect]

REACTIONS (1)
  - DEATH [None]
